FAERS Safety Report 16606294 (Version 5)
Quarter: 2020Q3

REPORT INFORMATION
  Report Type: Spontaneous
  Country: IE (occurrence: IE)
  Receive Date: 20190721
  Receipt Date: 20200730
  Transmission Date: 20201102
  Serious: Yes (Hospitalization)
  Sender: FDA-Public Use
  Company Number: IE-CELLTRION INC.-2019IE022807

PATIENT

DRUGS (1)
  1. INFLIXIMAB (UNKNOWN) [Suspect]
     Active Substance: INFLIXIMAB
     Indication: COLITIS ULCERATIVE
     Dosage: UNK; INFUSION
     Route: 065

REACTIONS (14)
  - Inflammatory marker increased [Unknown]
  - Pericardial effusion [Recovering/Resolving]
  - Chest pain [Recovering/Resolving]
  - White blood cell count increased [Unknown]
  - Colitis [Unknown]
  - Atrial fibrillation [Recovered/Resolved]
  - Chills [Recovering/Resolving]
  - Sepsis [Unknown]
  - Dyspnoea [Recovering/Resolving]
  - Dyspnoea exertional [Recovering/Resolving]
  - Blood pressure decreased [Recovering/Resolving]
  - Heart rate increased [Recovering/Resolving]
  - Pyrexia [Recovering/Resolving]
  - Cardiac tamponade [Recovered/Resolved]
